FAERS Safety Report 8402381-0 (Version None)
Quarter: 2012Q2

REPORT INFORMATION
  Report Type: 
  Country: None (occurrence: None)
  Receive Date: 20120529
  Receipt Date: 20090109
  Transmission Date: 20120825
  Serious: Yes (Hospitalization, Disabling)
  Sender: FDA-Public Use
  Company Number: 004900

PATIENT
  Age: 80 Year
  Sex: Male
  Weight: 75 kg

DRUGS (3)
  1. PLETAL [Suspect]
     Indication: CEREBRAL INFARCTION
     Dosage: 100 MG, BID, ORAL
     Route: 048
     Dates: start: 20080806, end: 20080811
  2. SLOVASTAN (ARGATROBAN) [Suspect]
  3. RADICUT (EDARAVONE) [Suspect]

REACTIONS (4)
  - HAEMORRHAGIC CEREBRAL INFARCTION [None]
  - DUODENAL ULCER HAEMORRHAGE [None]
  - LACUNAR INFARCTION [None]
  - CHRONIC MYELOMONOCYTIC LEUKAEMIA [None]
